FAERS Safety Report 19267726 (Version 1)
Quarter: 2021Q2

REPORT INFORMATION
  Report Type: Spontaneous
  Country: FR (occurrence: FR)
  Receive Date: 20210517
  Receipt Date: 20210517
  Transmission Date: 20210717
  Serious: Yes (Hospitalization)
  Sender: FDA-Public Use
  Company Number: FR-PFIZER INC-2021501277

PATIENT
  Age: 6 Year
  Sex: Female

DRUGS (6)
  1. BUSULFAN. [Suspect]
     Active Substance: BUSULFAN
     Indication: STEM CELL TRANSPLANT
  2. IMMUNOGLOBULIN ANTI HUMAN T?LYMPHOCYTE [Suspect]
     Active Substance: THYMOCYTE IMMUNE GLOBULIN NOS
     Indication: STEM CELL TRANSPLANT
     Dosage: 1G/KGWAS I1 G/KG WAS INFUSED AT DAYS 22 AND 23,
  3. CYCLOPHOSPHAMIDE. [Suspect]
     Active Substance: CYCLOPHOSPHAMIDE
     Indication: STEM CELL TRANSPLANT
  4. CYCLOSPORIN [Suspect]
     Active Substance: CYCLOSPORINE
     Indication: PROPHYLAXIS AGAINST GRAFT VERSUS HOST DISEASE
  5. METHOTREXATE. [Suspect]
     Active Substance: METHOTREXATE
     Indication: PROPHYLAXIS AGAINST GRAFT VERSUS HOST DISEASE
  6. IMMUNOGLOBULIN ANTI HUMAN T?LYMPHOCYTE [Suspect]
     Active Substance: THYMOCYTE IMMUNE GLOBULIN NOS
     Dosage: SECOND COURSE AT DAY51, 52
     Route: 042

REACTIONS (6)
  - Mucosal inflammation [Recovered/Resolved]
  - Herpes simplex reactivation [Recovered/Resolved]
  - Epstein-Barr virus infection [Unknown]
  - Cranial nerve disorder [Unknown]
  - Febrile neutropenia [Recovered/Resolved]
  - Off label use [Unknown]
